FAERS Safety Report 11163658 (Version 1)
Quarter: 2015Q2

REPORT INFORMATION
  Report Type: Spontaneous
  Country: DE (occurrence: DE)
  Receive Date: 20150604
  Receipt Date: 20150604
  Transmission Date: 20150821
  Serious: Yes (Other)
  Sender: FDA-Public Use
  Company Number: DE-AUROBINDO-AUR-APL-2015-04778

PATIENT
  Sex: Female
  Weight: 2.32 kg

DRUGS (2)
  1. LEVETIRACTAM [Suspect]
     Active Substance: LEVETIRACETAM
     Indication: EPILEPSY
     Dosage: 500 MG, TWO TIMES A DAY
     Route: 064
     Dates: start: 20140520, end: 20150205
  2. TOPIRAMATE. [Suspect]
     Active Substance: TOPIRAMATE
     Indication: EPILEPSY
     Dosage: 100 MG, TWO TIMES A DAY
     Route: 064
     Dates: start: 20140520, end: 20150205

REACTIONS (4)
  - Foetal exposure during pregnancy [Unknown]
  - Foetal growth restriction [Unknown]
  - Small for dates baby [Unknown]
  - Respiratory disorder neonatal [Recovered/Resolved]

NARRATIVE: CASE EVENT DATE: 20150205
